FAERS Safety Report 10095854 (Version 2)
Quarter: 2014Q2

REPORT INFORMATION
  Report Type: Spontaneous
  Country: US (occurrence: US)
  Receive Date: 20140422
  Receipt Date: 20140422
  Transmission Date: 20141212
  Serious: No
  Sender: FDA-Public Use
  Company Number: US-GILEAD-2013-0075293

PATIENT
  Sex: Female

DRUGS (3)
  1. LETAIRIS [Suspect]
     Indication: PULMONARY HYPERTENSION
     Dosage: 5 MG, QD
     Dates: start: 20130115
  2. LETAIRIS [Suspect]
     Indication: SARCOIDOSIS
  3. ADCIRCA [Concomitant]

REACTIONS (4)
  - Blood iron decreased [Unknown]
  - Fatigue [Unknown]
  - Nasal congestion [Unknown]
  - Sinusitis [Unknown]
